FAERS Safety Report 6340893-4 (Version None)
Quarter: 2009Q3

REPORT INFORMATION
  Report Type: 
  Country: None (occurrence: None)
  Receive Date: 20090904
  Receipt Date: 20090826
  Transmission Date: 20100115
  Serious: Yes (Other)
  Sender: FDA-Public Use
  Company Number: US-AVENTIS-200917636US

PATIENT
  Sex: Female

DRUGS (2)
  1. LANTUS [Suspect]
  2. OPTICLIK (INSULIN INJECTION PEN) [Suspect]

REACTIONS (4)
  - DEVICE MALFUNCTION [None]
  - MALAISE [None]
  - WEIGHT INCREASED [None]
  - WEIGHT LOSS POOR [None]
